FAERS Safety Report 5569189-5 (Version None)
Quarter: 2007Q4

REPORT INFORMATION
  Report Type: 
  Country: None (occurrence: None)
  Receive Date: 20071220
  Receipt Date: 20070917
  Transmission Date: 20080405
  Serious: No
  Sender: FDA-Public Use
  Company Number: A0676103A

PATIENT
  Age: 68 Year
  Sex: Male
  Weight: 114.1 kg

DRUGS (9)
  1. AVODART [Suspect]
     Indication: BENIGN PROSTATIC HYPERPLASIA
     Dosage: .4MG PER DAY
     Route: 048
     Dates: start: 20060315, end: 20070504
  2. ZOCOR [Suspect]
  3. TOPROL-XL [Suspect]
  4. COZAAR [Suspect]
  5. ADVAIR DISKUS 100/50 [Suspect]
  6. ALDACTONE [Suspect]
  7. SYNTHROID [Suspect]
     Dates: start: 20070301
  8. HYTRIN [Suspect]
  9. TAZAC [Suspect]

REACTIONS (6)
  - BREAST PAIN [None]
  - GYNAECOMASTIA [None]
  - INSOMNIA [None]
  - NIPPLE PAIN [None]
  - PANIC ATTACK [None]
  - THERAPEUTIC RESPONSE DECREASED [None]
